FAERS Safety Report 7897528-9 (Version None)
Quarter: 2011Q4

REPORT INFORMATION
  Report Type: 
  Country: None (occurrence: None)
  Receive Date: 20111107
  Receipt Date: 20111104
  Transmission Date: 20120403
  Serious: Yes (Other)
  Sender: FDA-Public Use
  Company Number: IT-SANOFI-AVENTIS-2011SA068554

PATIENT
  Age: 86 Year
  Sex: Male

DRUGS (9)
  1. ASPIRIN [Concomitant]
     Route: 065
  2. SOLOSA [Concomitant]
     Route: 065
  3. PANTOPRAZOLE [Concomitant]
     Route: 065
  4. METFORAL [Concomitant]
     Route: 048
  5. LASIX [Suspect]
     Route: 048
     Dates: start: 20100810, end: 20110809
  6. LUVION [Suspect]
     Route: 048
     Dates: start: 20100810, end: 20110809
  7. SEACOR [Concomitant]
     Route: 048
  8. NEBIVOLOL HCL [Suspect]
     Route: 048
     Dates: start: 20100810, end: 20110809
  9. ROSUVASTATIN CALCIUM [Concomitant]
     Route: 065

REACTIONS (1)
  - PRESYNCOPE [None]
